FAERS Safety Report 4970423-0 (Version None)
Quarter: 2006Q2

REPORT INFORMATION
  Report Type: 
  Country: None (occurrence: None)
  Receive Date: 20060406
  Receipt Date: 20060327
  Transmission Date: 20061013
  Serious: Yes (Other)
  Sender: FDA-Public Use
  Company Number: 2006043055

PATIENT
  Sex: Female

DRUGS (1)
  1. LIPITOR [Suspect]
     Indication: ILL-DEFINED DISORDER
     Dates: end: 20060325

REACTIONS (5)
  - ARTHRALGIA [None]
  - ARTHROSCOPIC SURGERY [None]
  - ASTHENIA [None]
  - CYST [None]
  - MYALGIA [None]
